FAERS Safety Report 10333143 (Version 1)
Quarter: 2014Q3

REPORT INFORMATION
  Report Type: Spontaneous
  Country: US (occurrence: US)
  Receive Date: 20140722
  Receipt Date: 20140722
  Transmission Date: 20150326
  Serious: No
  Sender: FDA-Public Use
  Company Number: US-SA-2014SA025702

PATIENT
  Age: 68 Year
  Sex: Female
  Weight: 68.03 kg

DRUGS (2)
  1. ZOLPIDEM TARTRATE EXTENDED RELEASE [Suspect]
     Active Substance: ZOLPIDEM TARTRATE
     Indication: SLEEP DISORDER
     Dosage: PRODUCT STOP IN FEB-2014 (DATE UNKNOWN)
     Route: 048
     Dates: start: 20140203, end: 20140206
  2. ZOLPIDEM [Concomitant]
     Active Substance: ZOLPIDEM\ZOLPIDEM TARTRATE
     Route: 065

REACTIONS (2)
  - Visual impairment [Unknown]
  - Drug ineffective [Unknown]
